FAERS Safety Report 4315671-8 (Version None)
Quarter: 2004Q1

REPORT INFORMATION
  Report Type: 
  Country: None (occurrence: None)
  Receive Date: 20040309
  Receipt Date: 20040224
  Transmission Date: 20041129
  Serious: Yes (Other)
  Sender: FDA-Public Use
  Company Number: US-SHR-04-021761

PATIENT
  Age: 55 Year
  Sex: Male

DRUGS (1)
  1. BETASERON [Suspect]
     Indication: MULTIPLE SCLEROSIS
     Dosage: 8 MIU, EVERY 2D, HS, SUBCUTANEOUS
     Route: 058
     Dates: start: 19950809

REACTIONS (2)
  - HYPERCALCIURIA [None]
  - OSTEOPOROSIS [None]
